FAERS Safety Report 6601230-0 (Version None)
Quarter: 2010Q1

REPORT INFORMATION
  Report Type: 
  Country: None (occurrence: None)
  Receive Date: 20100224
  Receipt Date: 20100224
  Transmission Date: 20100710
  Serious: Yes (Life-Threatening, Hospitalization, Disabling)
  Sender: FDA-Public Use
  Company Number: None

PATIENT
  Age: 39 Year
  Sex: Female
  Weight: 71.6683 kg

DRUGS (2)
  1. CYMBALTA [Suspect]
     Indication: FIBROMYALGIA
     Dosage: 1 BY MOUTH TWICE DAILY
     Route: 048
     Dates: start: 20050101, end: 20090704
  2. LYRICA [Suspect]
     Indication: PAIN
     Dosage: 3 DAY 1 MORN. 2 NIGHT
     Dates: start: 20050101, end: 20090714

REACTIONS (11)
  - CONFUSIONAL STATE [None]
  - DEPRESSION [None]
  - EMOTIONAL DISORDER [None]
  - FATIGUE [None]
  - FEELING ABNORMAL [None]
  - INTENTIONAL OVERDOSE [None]
  - RESPIRATORY DISORDER [None]
  - SOCIAL AVOIDANT BEHAVIOUR [None]
  - SOMNOLENCE [None]
  - THINKING ABNORMAL [None]
  - WEIGHT INCREASED [None]
